FAERS Safety Report 8298159-1 (Version None)
Quarter: 2012Q2

REPORT INFORMATION
  Report Type: 
  Country: None (occurrence: None)
  Receive Date: 20120419
  Receipt Date: 20120206
  Transmission Date: 20120825
  Serious: No
  Sender: FDA-Public Use
  Company Number: US-BRISTOL-MYERS SQUIBB COMPANY-16265035

PATIENT

DRUGS (1)
  1. YERVOY [Suspect]
     Dosage: NO OF INF:3

REACTIONS (1)
  - BLOOD THYROID STIMULATING HORMONE INCREASED [None]
